FAERS Safety Report 10283981 (Version 1)
Quarter: 2014Q3

REPORT INFORMATION
  Report Type: Report from Study
  Country: TN (occurrence: TN)
  Receive Date: 20140708
  Receipt Date: 20140708
  Transmission Date: 20150326
  Serious: Yes (Death)
  Sender: FDA-Public Use
  Company Number: TN-SA-2014SA087518

PATIENT
  Age: 79 Year
  Sex: Male

DRUGS (6)
  1. PLAVIX [Suspect]
     Active Substance: CLOPIDOGREL BISULFATE
     Indication: MYOCARDIAL INFARCTION
     Dosage: DOSE: 75 (UNITS UNSPECIFIED)
     Route: 048
     Dates: start: 20121130, end: 20140502
  2. ASPEGIC [Concomitant]
     Active Substance: ASPIRIN DL-LYSINE
     Route: 048
  3. CAPTOPRIL. [Concomitant]
     Active Substance: CAPTOPRIL
     Route: 048
  4. HYPOTEN [Concomitant]
     Route: 048
  5. DAONIL [Concomitant]
     Active Substance: GLYBURIDE
     Route: 048
  6. ATOR [Concomitant]
     Active Substance: ATORVASTATIN CALCIUM
     Route: 048

REACTIONS (1)
  - Cardiac arrest [Fatal]

NARRATIVE: CASE EVENT DATE: 20140502
